FAERS Safety Report 7098540-2 (Version None)
Quarter: 2010Q4

REPORT INFORMATION
  Report Type: 
  Country: None (occurrence: None)
  Receive Date: 20101112
  Receipt Date: 20101102
  Transmission Date: 20110411
  Serious: Yes (Hospitalization, Other)
  Sender: FDA-Public Use
  Company Number: EE-SANOFI-AVENTIS-2010SA067379

PATIENT
  Age: 54 Year
  Sex: Male
  Weight: 100 kg

DRUGS (7)
  1. ENOXAPARIN SODIUM [Suspect]
     Route: 065
     Dates: start: 20091104, end: 20091111
  2. MARCAINE [Concomitant]
     Dates: start: 20091105, end: 20091105
  3. CEFDINIR [Concomitant]
     Dates: start: 20091105, end: 20091106
  4. EFEDRIN [Concomitant]
     Dates: start: 20091105, end: 20091105
  5. PARACETAMOL [Concomitant]
     Dates: start: 20091105, end: 20091105
  6. FOSINOPRIL W/HYDROCHLOROTHIAZIDE [Concomitant]
     Dates: start: 20091001
  7. AMLODIPINE [Concomitant]
     Dates: start: 20091001

REACTIONS (3)
  - ALANINE AMINOTRANSFERASE INCREASED [None]
  - ASPARTATE AMINOTRANSFERASE INCREASED [None]
  - BLOOD BILIRUBIN INCREASED [None]
